FAERS Safety Report 5615628-0 (Version None)
Quarter: 2008Q1

REPORT INFORMATION
  Report Type: 
  Country: None (occurrence: None)
  Receive Date: 20080206
  Receipt Date: 20080201
  Transmission Date: 20080703
  Serious: Yes (Other)
  Sender: FDA-Public Use
  Company Number: B0497774A

PATIENT
  Age: 75 Year
  Sex: Female
  Weight: 63 kg

DRUGS (19)
  1. ARIXTRA [Suspect]
     Indication: THROMBOSIS PROPHYLAXIS
     Dosage: 2.5MG PER DAY
     Route: 058
     Dates: start: 20071123, end: 20071125
  2. LOXONIN [Suspect]
     Indication: DRUG USE FOR UNKNOWN INDICATION
     Dosage: 60MG THREE TIMES PER DAY
     Route: 048
  3. ROPION [Suspect]
     Indication: DRUG USE FOR UNKNOWN INDICATION
     Route: 065
  4. CEFMETAZON [Suspect]
     Indication: DRUG USE FOR UNKNOWN INDICATION
     Dosage: 1G PER DAY
     Route: 065
     Dates: start: 20071122, end: 20071124
  5. GLYSENNID [Concomitant]
     Dosage: 12MG PER DAY
     Route: 048
  6. TEGRETOL [Concomitant]
     Dosage: 600MG PER DAY
     Route: 048
  7. SIGMART [Concomitant]
     Dosage: 15MG PER DAY
     Route: 048
  8. MUCOSTA [Concomitant]
     Dosage: 300MG PER DAY
     Route: 048
  9. JUVELA N [Concomitant]
     Dosage: 600MG PER DAY
     Route: 048
  10. CYANOCOBALAMIN [Concomitant]
     Dosage: 1500MG PER DAY
     Route: 048
  11. MOBIC [Concomitant]
     Dosage: 10MG PER DAY
     Route: 048
  12. OMEPRAL [Concomitant]
     Dosage: 10MG PER DAY
     Route: 048
  13. TRICHLORMETHIAZIDE [Concomitant]
     Dosage: 2MG PER DAY
     Route: 048
  14. OLMETEC [Concomitant]
     Dosage: 20MG PER DAY
     Route: 048
  15. VASOLAN [Concomitant]
     Dosage: 40MG PER DAY
     Route: 048
  16. ADALAT [Concomitant]
     Dosage: 20MG PER DAY
     Route: 048
  17. MINIPRESS [Concomitant]
     Dosage: 1MG PER DAY
     Route: 048
  18. URSO 250 [Concomitant]
     Dosage: 200MG PER DAY
     Route: 048
  19. NITRODERM [Concomitant]
     Dosage: 25MG PER DAY
     Route: 062

REACTIONS (6)
  - ANURIA [None]
  - RENAL AMYLOIDOSIS [None]
  - RENAL FAILURE [None]
  - RENAL TUBULAR NECROSIS [None]
  - TUBULOINTERSTITIAL NEPHRITIS [None]
  - URINARY TRACT INFECTION [None]
